FAERS Safety Report 10801667 (Version 1)
Quarter: 2015Q1

REPORT INFORMATION
  Report Type: Spontaneous
  Country: CN (occurrence: CN)
  Receive Date: 20150217
  Receipt Date: 20150217
  Transmission Date: 20150721
  Serious: Yes (Death, Hospitalization, Other)
  Sender: FDA-Public Use
  Company Number: CN-BAYER-2015-015898

PATIENT
  Age: 82 Year
  Sex: Male

DRUGS (1)
  1. CIPROFLOXACIN BETAIN [Suspect]
     Active Substance: CIPROFLOXACIN
     Indication: COUGH
     Dosage: 20 ML, INHALATION , TID, 20MIN / TIMES

REACTIONS (6)
  - Renal failure [Fatal]
  - Electrolyte imbalance [None]
  - Blood urea increased [None]
  - Blood creatinine increased [None]
  - Anuria [None]
  - Henoch-Schonlein purpura nephritis [None]
